FAERS Safety Report 5065481-1 (Version None)
Quarter: 2006Q3

REPORT INFORMATION
  Report Type: 
  Country: None (occurrence: None)
  Receive Date: 20060725
  Receipt Date: 20060714
  Transmission Date: 20061208
  Serious: Yes (Other)
  Sender: FDA-Public Use
  Company Number: 227673

PATIENT

DRUGS (2)
  1. ERLOTINIB (ERLOTINIB) TABLET [Suspect]
     Indication: NON-SMALL CELL LUNG CANCER
  2. AVASTIN [Suspect]
     Indication: NON-SMALL CELL LUNG CANCER

REACTIONS (2)
  - IRITIS [None]
  - UVEITIS [None]
